FAERS Safety Report 15065804 (Version 1)
Quarter: 2018Q2

REPORT INFORMATION
  Report Type: Report from Study
  Country: None (occurrence: US)
  Receive Date: 20180626
  Receipt Date: 20180626
  Transmission Date: 20180711
  Serious: Yes (Hospitalization, Other)
  Sender: FDA-Public Use
  Company Number: US-ABBVIE-17K-163-2089839-00

PATIENT
  Age: 49 Year
  Sex: Male

DRUGS (2)
  1. HUMIRA [Suspect]
     Active Substance: ADALIMUMAB
     Indication: CROHN^S DISEASE
     Route: 058
     Dates: start: 2017
  2. PREDNISONE. [Suspect]
     Active Substance: PREDNISONE
     Indication: PRODUCT USED FOR UNKNOWN INDICATION
     Route: 065

REACTIONS (19)
  - Crohn^s disease [Not Recovered/Not Resolved]
  - Abdominal adhesions [Unknown]
  - Haematochezia [Unknown]
  - Injection site haemorrhage [Unknown]
  - Intestinal obstruction [Recovering/Resolving]
  - Anorectal discomfort [Unknown]
  - Gastrointestinal haemorrhage [Unknown]
  - Abdominal discomfort [Unknown]
  - Insomnia [Unknown]
  - Food intolerance [Unknown]
  - Injection site bruising [Unknown]
  - Intentional product misuse [Unknown]
  - Anal incontinence [Unknown]
  - Influenza [Recovering/Resolving]
  - Injection site pain [Unknown]
  - Frequent bowel movements [Unknown]
  - Injection site pain [Unknown]
  - Feeling jittery [Unknown]
  - Respiratory tract congestion [Recovering/Resolving]

NARRATIVE: CASE EVENT DATE: 2017
